FAERS Safety Report 6136933-8 (Version None)
Quarter: 2009Q1

REPORT INFORMATION
  Report Type: 
  Country: None (occurrence: None)
  Receive Date: 20090330
  Receipt Date: 20090318
  Transmission Date: 20090719
  Serious: Yes (Other)
  Sender: FDA-Public Use
  Company Number: US-PFIZER INC-2009186111

PATIENT
  Sex: Female
  Weight: 148.75 kg

DRUGS (4)
  1. CHANTIX [Suspect]
     Indication: SMOKING CESSATION THERAPY
     Dosage: 0.5 MG, 1X/DAY
     Dates: start: 20090301, end: 20090301
  2. CHANTIX [Suspect]
     Dosage: 0.5 MG, 2X/DAY
     Dates: start: 20090301, end: 20090317
  3. SYNTHROID [Concomitant]
     Dosage: 100 UG, UNK
  4. METFORMIN [Concomitant]
     Dosage: 2000 MG, UNK

REACTIONS (2)
  - ABSCESS ORAL [None]
  - SWELLING FACE [None]
